FAERS Safety Report 11886149 (Version 2)
Quarter: 2016Q1

REPORT INFORMATION
  Report Type: Spontaneous
  Country: US (occurrence: US)
  Receive Date: 20160104
  Receipt Date: 20160226
  Transmission Date: 20160526
  Serious: No
  Sender: FDA-Public Use
  Company Number: US-PFIZER INC-2015462953

PATIENT
  Age: 54 Year
  Sex: Female

DRUGS (1)
  1. IBRANCE [Suspect]
     Active Substance: PALBOCICLIB
     Indication: NEOPLASM MALIGNANT
     Dosage: 75 MG, UNK
     Route: 048
     Dates: start: 20150709

REACTIONS (2)
  - Neoplasm malignant [Unknown]
  - Disease progression [Unknown]

NARRATIVE: CASE EVENT DATE: 201511
